FAERS Safety Report 23483573 (Version 5)
Quarter: 2024Q2

REPORT INFORMATION
  Report Type: Spontaneous
  Country: US (occurrence: US)
  Receive Date: 20240205
  Receipt Date: 20240401
  Transmission Date: 20240716
  Serious: No
  Sender: FDA-Public Use
  Company Number: US-PFIZER INC-202400029417

PATIENT
  Age: 61 Year
  Sex: Female

DRUGS (1)
  1. PREMPHASE [Suspect]
     Active Substance: ESTROGENS, CONJUGATED\MEDROXYPROGESTERONE ACETATE
     Dosage: TAKE ONE TABLET BY MOUTH DAILY
     Route: 048

REACTIONS (2)
  - Malaise [Unknown]
  - Vomiting [Unknown]
